FAERS Safety Report 18893131 (Version 2)
Quarter: 2021Q1

REPORT INFORMATION
  Report Type: Report from Study
  Country: None (occurrence: US)
  Receive Date: 20210215
  Receipt Date: 20210309
  Transmission Date: 20210420
  Serious: Yes (Hospitalization)
  Sender: FDA-Public Use
  Company Number: US-ABBVIE-21P-163-3765212-00

PATIENT
  Age: 59 Year
  Sex: Female
  Weight: 44.7 kg

DRUGS (6)
  1. VENETOCLAX. [Suspect]
     Active Substance: VENETOCLAX
     Route: 048
  2. VENETOCLAX. [Suspect]
     Active Substance: VENETOCLAX
     Route: 048
  3. VENETOCLAX. [Suspect]
     Active Substance: VENETOCLAX
     Indication: B PRECURSOR TYPE ACUTE LEUKAEMIA
     Route: 048
     Dates: start: 20201228
  4. VENETOCLAX. [Suspect]
     Active Substance: VENETOCLAX
     Route: 048
  5. VENETOCLAX. [Suspect]
     Active Substance: VENETOCLAX
     Route: 048
     Dates: end: 20210202
  6. VINCRISTINE LIPOSOMAL [Concomitant]
     Active Substance: VINCRISTINE
     Indication: B PRECURSOR TYPE ACUTE LEUKAEMIA
     Route: 042
     Dates: start: 20210111, end: 20210201

REACTIONS (1)
  - Fungaemia [Recovered/Resolved with Sequelae]

NARRATIVE: CASE EVENT DATE: 20210203
